FAERS Safety Report 5494912-8 (Version None)
Quarter: 2007Q4

REPORT INFORMATION
  Report Type: 
  Country: None (occurrence: None)
  Receive Date: 20071024
  Receipt Date: 20071016
  Transmission Date: 20080405
  Serious: Yes (Other)
  Sender: FDA-Public Use
  Company Number: US-JNJFOC-20061104389

PATIENT
  Sex: Female
  Weight: 76.66 kg

DRUGS (1)
  1. ORTHO EVRA [Suspect]
     Indication: OFF LABEL USE
     Route: 062

REACTIONS (1)
  - INJURY [None]
